FAERS Safety Report 15792967 (Version 1)
Quarter: 2019Q1

REPORT INFORMATION
  Report Type: Spontaneous
  Country: IL (occurrence: IL)
  Receive Date: 20190107
  Receipt Date: 20190107
  Transmission Date: 20190417
  Serious: Yes (Other)
  Sender: FDA-Public Use
  Company Number: IL-DEXPHARM-20180693

PATIENT
  Age: 81 Year
  Sex: Female

DRUGS (6)
  1. CARDILOC [Concomitant]
     Active Substance: BISOPROLOL FUMARATE
  2. PERJETA [Concomitant]
     Active Substance: PERTUZUMAB
  3. HERCEPTIN [Concomitant]
     Active Substance: TRASTUZUMAB
  4. ATACAND PLUS [Suspect]
     Active Substance: CANDESARTAN CILEXETIL\HYDROCHLOROTHIAZIDE
     Dates: start: 20141216
  5. LETROZOLE. [Interacting]
     Active Substance: LETROZOLE
  6. OMEPRADEX [Interacting]
     Active Substance: OMEPRAZOLE

REACTIONS (2)
  - Drug interaction [Unknown]
  - Hypomagnesaemia [Unknown]
